FAERS Safety Report 16580244 (Version 1)
Quarter: 2019Q3

REPORT INFORMATION
  Report Type: Spontaneous
  Country: JP (occurrence: JP)
  Receive Date: 20190716
  Receipt Date: 20190716
  Transmission Date: 20191004
  Serious: Yes (Hospitalization)
  Sender: FDA-Public Use
  Company Number: JP-UCBSA-2019029257

PATIENT
  Age: 66 Year
  Sex: Female

DRUGS (5)
  1. VIMPAT [Suspect]
     Active Substance: LACOSAMIDE
     Indication: PRODUCT USED FOR UNKNOWN INDICATION
     Dosage: 50 MILLIGRAM, 2X/DAY (BID)
     Route: 048
     Dates: start: 20190701
  2. NEUPRO [Concomitant]
     Active Substance: ROTIGOTINE
     Indication: PRODUCT USED FOR UNKNOWN INDICATION
     Route: 062
  3. DONEPEZIL HYDROCHLORIDE. [Concomitant]
     Active Substance: DONEPEZIL HYDROCHLORIDE
     Route: 048
  4. URSODEOXYCHOLIC ACID [Concomitant]
     Active Substance: URSODIOL
     Route: 048
  5. MENESIT [Concomitant]
     Active Substance: CARBIDOPA\LEVODOPA
     Route: 048

REACTIONS (2)
  - Altered state of consciousness [Not Recovered/Not Resolved]
  - Hypoglycaemia [Not Recovered/Not Resolved]

NARRATIVE: CASE EVENT DATE: 201907
